FAERS Safety Report 5639629-1 (Version None)
Quarter: 2008Q1

REPORT INFORMATION
  Report Type: 
  Country: None (occurrence: None)
  Receive Date: 20080222
  Receipt Date: 20080215
  Transmission Date: 20080703
  Serious: Yes (Hospitalization)
  Sender: FDA-Public Use
  Company Number: 1-15789299

PATIENT
  Age: 70 Year
  Sex: Male

DRUGS (5)
  1. FENTANYL [Suspect]
     Indication: CANCER PAIN
     Dosage: 100MCG/HR EVERY 3 D, TRANSDERMAL
     Route: 062
     Dates: start: 20080209, end: 20080209
  2. DIOVAN HCT (VALSARTAN AND HYDROCHLOROTHIAZIDE) [Concomitant]
  3. VESICARE [Concomitant]
  4. COMBIVENT (IPRATROPIUM BROMIDE AND ALBUTEROL SULFATE) [Concomitant]
  5. AMLODIPINE [Concomitant]

REACTIONS (4)
  - HYPERHIDROSIS [None]
  - LOSS OF CONSCIOUSNESS [None]
  - PHARMACEUTICAL PRODUCT COMPLAINT [None]
  - VOMITING [None]
